FAERS Safety Report 5853132-5 (Version None)
Quarter: 2008Q3

REPORT INFORMATION
  Report Type: 
  Country: None (occurrence: None)
  Receive Date: 20080821
  Receipt Date: 20080811
  Transmission Date: 20090109
  Serious: Yes (Hospitalization)
  Sender: FDA-Public Use
  Company Number: ES-ABBOTT-08P-144-0470100-00

PATIENT
  Age: 38 Year
  Sex: Female

DRUGS (4)
  1. PROCRIN [Suspect]
     Indication: OVULATION INDUCTION
     Route: 058
     Dates: start: 20080506, end: 20080525
  2. CHORIONIC GONADTROPIN [Suspect]
     Indication: OVULATION INDUCTION
     Route: 058
     Dates: start: 20080526, end: 20080526
  3. LUTROPIN ALFA [Suspect]
     Indication: OVULATION INDUCTION
     Route: 058
     Dates: start: 20080517, end: 20080525
  4. UROFOLLITROPIN [Suspect]
     Indication: OVULATION INDUCTION
     Route: 058
     Dates: start: 20080517, end: 20080525

REACTIONS (1)
  - OVARIAN HYPERSTIMULATION SYNDROME [None]
